FAERS Safety Report 8141358-X (Version None)
Quarter: 2012Q1

REPORT INFORMATION
  Report Type: 
  Country: None (occurrence: None)
  Receive Date: 20120216
  Receipt Date: 20120209
  Transmission Date: 20120608
  Serious: Yes (Other)
  Sender: FDA-Public Use
  Company Number: PHHY2012MX011985

PATIENT
  Sex: Male

DRUGS (3)
  1. LIPITOR [Concomitant]
     Indication: BLOOD CHOLESTEROL
     Dosage: ONE TABLET DAILY
     Dates: start: 20111001
  2. DIOVAN HCT [Suspect]
     Indication: HYPERTENSION
     Dosage: 1 DF, (160/12.5 MG, ONE TABLET DAILY)
     Dates: start: 20111001
  3. PLAVIX [Concomitant]
     Indication: ANTICOAGULANT THERAPY
     Dosage: ONE TABLET DAILY
     Dates: start: 20111001

REACTIONS (2)
  - FALL [None]
  - JOINT DISLOCATION [None]
